FAERS Safety Report 10576832 (Version 2)
Quarter: 2014Q4

REPORT INFORMATION
  Report Type: Spontaneous
  Country: RU (occurrence: RU)
  Receive Date: 20141111
  Receipt Date: 20141111
  Transmission Date: 20150529
  Serious: Yes (Hospitalization)
  Sender: FDA-Public Use
  Company Number: RU-BRISTOL-MYERS SQUIBB COMPANY-20209250

PATIENT
  Age: 53 Year
  Sex: Female
  Weight: 85 kg

DRUGS (3)
  1. ERBITUX [Suspect]
     Active Substance: CETUXIMAB
     Indication: COLON CANCER
     Dosage: 400MG-16MAY13-17JAN14-1 IN 1WK?400MG-JAN14-STOP?STOP ON 17FEB14
     Route: 042
     Dates: start: 20130516, end: 20140124
  2. DEXAMETHASONE. [Concomitant]
     Active Substance: DEXAMETHASONE
     Indication: PREMEDICATION
     Route: 042
     Dates: start: 20130516, end: 20140117
  3. HEPTRAL [Concomitant]
     Active Substance: ADEMETIONINE

REACTIONS (3)
  - Epistaxis [Unknown]
  - Thrombocytopenia [Recovering/Resolving]
  - Dermatitis acneiform [Recovering/Resolving]

NARRATIVE: CASE EVENT DATE: 201401
